FAERS Safety Report 5753191-4 (Version None)
Quarter: 2008Q2

REPORT INFORMATION
  Report Type: 
  Country: None (occurrence: None)
  Receive Date: 20080527
  Receipt Date: 20080519
  Transmission Date: 20081010
  Serious: Yes (Death)
  Sender: FDA-Public Use
  Company Number: 2008S1000025

PATIENT
  Age: 8 Day
  Sex: Male
  Weight: 0.93 kg

DRUGS (7)
  1. NITRIC OXIDE [Suspect]
     Indication: LUNG DISORDER
     Dosage: 5 PPM;CONT;INH
     Route: 055
     Dates: start: 20080117, end: 20080128
  2. VANCOMYCIN [Concomitant]
  3. IMIPENEM [Concomitant]
  4. BLOOD CELLS, PACKED HUMAN [Concomitant]
  5. PLASMA [Concomitant]
  6. SODIUM BICARBONATE [Concomitant]
  7. MORPHINE [Concomitant]

REACTIONS (5)
  - ABDOMINAL DISTENSION [None]
  - CARDIAC ARREST [None]
  - HYPOTENSION [None]
  - INTESTINAL PERFORATION [None]
  - PATENT DUCTUS ARTERIOSUS [None]
